FAERS Safety Report 11402673 (Version 1)
Quarter: 2015Q3

REPORT INFORMATION
  Report Type: Spontaneous
  Country: US (occurrence: US)
  Receive Date: 20150821
  Receipt Date: 20150821
  Transmission Date: 20151125
  Serious: No
  Sender: FDA-Public Use
  Company Number: US-ROCHE-1292889

PATIENT
  Sex: Female

DRUGS (2)
  1. PEGASYS [Suspect]
     Active Substance: PEGINTERFERON ALFA-2A
     Indication: CHRONIC HEPATITIS C
     Route: 058
     Dates: start: 20130524
  2. RIBAVIRIN. [Suspect]
     Active Substance: RIBAVIRIN
     Indication: CHRONIC HEPATITIS C
     Dosage: DIVIDED DOSES
     Route: 048
     Dates: start: 20130524

REACTIONS (8)
  - Hypotonia [Unknown]
  - Amnesia [Unknown]
  - Contusion [Unknown]
  - Eye irritation [Unknown]
  - Unevaluable event [Unknown]
  - Alopecia [Unknown]
  - Pruritus [Unknown]
  - Headache [Unknown]
